FAERS Safety Report 21794678 (Version 1)
Quarter: 2022Q4

REPORT INFORMATION
  Report Type: Report from Study
  Country: CH (occurrence: None)
  Receive Date: 20221229
  Receipt Date: 20221229
  Transmission Date: 20230112
  Serious: Yes (Death)
  Sender: FDA-Public Use
  Company Number: CH-ROCHE-3251358

PATIENT
  Age: 76 Year
  Sex: Male
  Weight: 73 kg

DRUGS (3)
  1. BEVACIZUMAB [Suspect]
     Active Substance: BEVACIZUMAB
     Indication: Pleural mesothelioma malignant
     Dosage: BEVACIZUMAB - DATE OF LAST ADMINISTRATION?BEFORE SAE 2021-08-27
     Route: 065
     Dates: start: 20210107
  2. PEMETREXED [Suspect]
     Active Substance: PEMETREXED
     Indication: Pleural mesothelioma malignant
     Dosage: PEMETREXED - DATE OF LAST ADMINISTRATION BEFORE SAE 23/04/2021
     Route: 065
     Dates: start: 20220107
  3. CARBOPLATIN [Suspect]
     Active Substance: CARBOPLATIN
     Indication: Pleural mesothelioma malignant
     Dosage: CARBOPLATIN - DATE OF LAST ADMINISTRATION BEFORE SAE, 23/04/2021
     Route: 065
     Dates: start: 20210107

REACTIONS (1)
  - Sepsis [Fatal]

NARRATIVE: CASE EVENT DATE: 20211013
